FAERS Safety Report 7340542-2 (Version None)
Quarter: 2011Q1

REPORT INFORMATION
  Report Type: 
  Country: None (occurrence: None)
  Receive Date: 20110309
  Receipt Date: 20110225
  Transmission Date: 20110831
  Serious: Yes (Life-Threatening)
  Sender: FDA-Public Use
  Company Number: PHHO2011US03789

PATIENT
  Sex: Female
  Weight: 80 kg

DRUGS (1)
  1. GILENYA [Suspect]
     Indication: MULTIPLE SCLEROSIS
     Dosage: DOSE BLINDED
     Dates: start: 20100512

REACTIONS (7)
  - RASH ERYTHEMATOUS [None]
  - LENTIGO [None]
  - BASAL CELL CARCINOMA [None]
  - MELANOCYTIC NAEVUS [None]
  - SEBORRHOEIC KERATOSIS [None]
  - CAMPBELL DE MORGAN SPOTS [None]
  - HYPERKERATOSIS [None]
